FAERS Safety Report 6257227-6 (Version None)
Quarter: 2009Q3

REPORT INFORMATION
  Report Type: 
  Country: None (occurrence: None)
  Receive Date: 20090706
  Receipt Date: 20090624
  Transmission Date: 20100115
  Serious: Yes (Disabling)
  Sender: FDA-Public Use
  Company Number: BR-PFIZER INC-2009231931

PATIENT
  Age: 82 Year

DRUGS (1)
  1. TOLTERODINE TARTRATE [Suspect]
     Indication: URINARY INCONTINENCE
     Dosage: UNK
     Dates: start: 20090401

REACTIONS (1)
  - EXOSTOSIS [None]
